FAERS Safety Report 16003882 (Version 1)
Quarter: 2019Q1

REPORT INFORMATION
  Report Type: Spontaneous
  Country: US (occurrence: US)
  Receive Date: 20190226
  Receipt Date: 20190226
  Transmission Date: 20190418
  Serious: Yes (Other)
  Sender: FDA-Public Use
  Company Number: US-GLAXOSMITHKLINE-US2019GSK031261

PATIENT
  Age: 59 Year
  Sex: Female
  Weight: 59.42 kg

DRUGS (2)
  1. VENTOLIN [Suspect]
     Active Substance: ALBUTEROL SULFATE
     Indication: ASTHMA
     Dosage: UNK, PRN
     Route: 055
  2. CELEBREX [Suspect]
     Active Substance: CELECOXIB
     Indication: BACK PAIN
     Dosage: 200 MG, QD
     Route: 048

REACTIONS (10)
  - Asthma [Unknown]
  - Tremor [Unknown]
  - Drug ineffective [Unknown]
  - Swelling face [Not Recovered/Not Resolved]
  - Intentional product misuse [Unknown]
  - Urinary retention [Unknown]
  - Swollen tongue [Unknown]
  - Eye swelling [Not Recovered/Not Resolved]
  - Oropharyngeal pain [Not Recovered/Not Resolved]
  - Cough [Unknown]

NARRATIVE: CASE EVENT DATE: 20171129
